FAERS Safety Report 7822668-X (Version None)
Quarter: 2011Q4

REPORT INFORMATION
  Report Type: 
  Country: None (occurrence: None)
  Receive Date: 20111018
  Receipt Date: 20111010
  Transmission Date: 20120403
  Serious: Yes (Hospitalization, Other)
  Sender: FDA-Public Use
  Company Number: US-ASTRAZENECA-2011SE10450

PATIENT
  Age: 76 Year
  Sex: Male

DRUGS (2)
  1. NEXIUM [Suspect]
     Route: 048
  2. NEXIUM [Suspect]
     Route: 048

REACTIONS (8)
  - DIPLOPIA [None]
  - MEDICAL DEVICE COMPLICATION [None]
  - AMNESIA [None]
  - ROAD TRAFFIC ACCIDENT [None]
  - MALAISE [None]
  - VOMITING [None]
  - ABDOMINAL DISCOMFORT [None]
  - BRAIN NEOPLASM [None]
